FAERS Safety Report 5961575-4 (Version None)
Quarter: 2008Q4

REPORT INFORMATION
  Report Type: 
  Country: None (occurrence: None)
  Receive Date: 20081121
  Receipt Date: 20081119
  Transmission Date: 20090506
  Serious: Yes (Hospitalization)
  Sender: FDA-Public Use
  Company Number: B0546604A

PATIENT
  Age: 85 Year
  Sex: Male

DRUGS (1)
  1. ZELITREX [Suspect]
     Indication: HERPES ZOSTER OPHTHALMIC
     Dosage: 500MG SIX TIMES PER DAY
     Route: 048
     Dates: start: 20081003, end: 20081005

REACTIONS (7)
  - AGITATION [None]
  - CONFUSIONAL STATE [None]
  - DISORIENTATION [None]
  - DISTURBANCE IN ATTENTION [None]
  - HALLUCINATION [None]
  - MENTAL IMPAIRMENT [None]
  - OVERDOSE [None]
